FAERS Safety Report 20861051 (Version 2)
Quarter: 2022Q2

REPORT INFORMATION
  Report Type: Spontaneous
  Country: US (occurrence: None)
  Receive Date: 20220523
  Receipt Date: 20220629
  Transmission Date: 20220721
  Serious: No
  Sender: FDA-Public Use
  Company Number: 2022A179802

PATIENT
  Sex: Female
  Weight: 61.2 kg

DRUGS (1)
  1. SYMBICORT [Suspect]
     Active Substance: BUDESONIDE\FORMOTEROL FUMARATE DIHYDRATE
     Indication: Asthma
     Dosage: 80/4.5 MCG,2 PUFFS AS REQUIRED
     Route: 055

REACTIONS (8)
  - Visual impairment [Unknown]
  - Cough [Unknown]
  - Body height decreased [Unknown]
  - Off label use [Unknown]
  - Product dose omission issue [Unknown]
  - Intentional device use issue [Unknown]
  - Device malfunction [Unknown]
  - Dyspnoea [Unknown]
